FAERS Safety Report 6644994-2 (Version None)
Quarter: 2010Q1

REPORT INFORMATION
  Report Type: 
  Country: None (occurrence: None)
  Receive Date: 20100322
  Receipt Date: 20100311
  Transmission Date: 20100710
  Serious: Yes (Other)
  Sender: FDA-Public Use
  Company Number: PHEH2010US03052

PATIENT
  Sex: Male

DRUGS (3)
  1. RECLAST [Suspect]
     Indication: OSTEOPOROSIS
     Dosage: 5 MG IV YEARLY
     Route: 042
     Dates: start: 20100308, end: 20100308
  2. VALPROATE BISMUTH [Concomitant]
     Dosage: 500 MG, BID
  3. ZONISAMIDE [Concomitant]
     Dosage: 200 MG, BID

REACTIONS (1)
  - GRAND MAL CONVULSION [None]
